FAERS Safety Report 5818607-3 (Version None)
Quarter: 2008Q3

REPORT INFORMATION
  Report Type: 
  Country: None (occurrence: None)
  Receive Date: 20080722
  Receipt Date: 20080714
  Transmission Date: 20090109
  Serious: Yes (Hospitalization)
  Sender: FDA-Public Use
  Company Number: US-ELI_LILLY_AND_COMPANY-US200807002876

PATIENT
  Sex: Male

DRUGS (2)
  1. HUMATROPE [Suspect]
     Dates: start: 20050101
  2. HUMATROPE [Suspect]
     Dates: start: 20050101

REACTIONS (3)
  - KNEE ARTHROPLASTY [None]
  - OXYGEN SATURATION DECREASED [None]
  - SLEEP APNOEA SYNDROME [None]
